FAERS Safety Report 16076187 (Version 1)
Quarter: 2019Q1

REPORT INFORMATION
  Report Type: Spontaneous
  Country: FR (occurrence: FR)
  Receive Date: 20190315
  Receipt Date: 20190315
  Transmission Date: 20190418
  Serious: Yes (Hospitalization)
  Sender: FDA-Public Use
  Company Number: FR-ACCORD-113181

PATIENT
  Age: 69 Year
  Sex: Male
  Weight: 67 kg

DRUGS (2)
  1. ONDANSETRON [Suspect]
     Active Substance: ONDANSETRON
     Indication: MYELODYSPLASTIC SYNDROME
     Route: 048
     Dates: start: 20170109, end: 20171117
  2. AZACITIDINE. [Suspect]
     Active Substance: AZACITIDINE
     Indication: MYELODYSPLASTIC SYNDROME
     Dosage: 140 MILLIGRAM
     Route: 058
     Dates: start: 20171113, end: 20171117

REACTIONS (2)
  - Off label use [Unknown]
  - Pancreatitis acute [Recovered/Resolved]

NARRATIVE: CASE EVENT DATE: 20171115
